FAERS Safety Report 21322669 (Version 1)
Quarter: 2022Q3

REPORT INFORMATION
  Report Type: Spontaneous
  Country: None (occurrence: CA)
  Receive Date: 20220912
  Receipt Date: 20220912
  Transmission Date: 20221027
  Serious: Yes (Life-Threatening, Hospitalization)
  Sender: FDA-Public Use
  Company Number: CA-B.Braun Medical Inc.-2132744

PATIENT
  Age: 65 Year
  Sex: Female

DRUGS (5)
  1. HEPARIN SODIUM IN DEXTROSE [Suspect]
     Active Substance: HEPARIN SODIUM
  2. CALCIUM CHLORIDE [Concomitant]
     Active Substance: CALCIUM CHLORIDE
  3. EPINEPHRINE [Concomitant]
     Active Substance: EPINEPHRINE
  4. NOREPINEPHRINE [Concomitant]
     Active Substance: NOREPINEPHRINE
  5. ALTEPLASE [Suspect]
     Active Substance: ALTEPLASE

REACTIONS (2)
  - Haemothorax [Recovered/Resolved]
  - Thoracic cavity drainage [Recovered/Resolved]
